FAERS Safety Report 4287197-1 (Version None)
Quarter: 2004Q1

REPORT INFORMATION
  Report Type: 
  Country: None (occurrence: None)
  Receive Date: 20040126
  Receipt Date: 20030825
  Transmission Date: 20041129
  Serious: No
  Sender: FDA-Public Use
  Company Number: USA030845258

PATIENT
  Age: 78 Year
  Sex: Female
  Weight: 70 kg

DRUGS (6)
  1. FORTEO [Suspect]
     Indication: OSTEOPOROSIS
     Dates: start: 20030801
  2. FORADIL [Concomitant]
  3. LEVOTHYROXIN [Concomitant]
  4. ACIPHEX (RABEPRZOLE SODIUM) [Concomitant]
  5. COZAAR [Concomitant]
  6. PLAVIX [Concomitant]

REACTIONS (2)
  - NERVOUSNESS [None]
  - TREMOR [None]
